FAERS Safety Report 13586241 (Version 1)
Quarter: 2017Q2

REPORT INFORMATION
  Report Type: Report from Study
  Country: US (occurrence: US)
  Receive Date: 20170526
  Receipt Date: 20170526
  Transmission Date: 20170830
  Serious: Yes (Other)
  Sender: FDA-Public Use
  Company Number: PHHO2014US018568

PATIENT
  Age: 51 Year
  Sex: Female
  Weight: 75.24 kg

DRUGS (7)
  1. NEBIVOLOL. [Concomitant]
     Active Substance: NEBIVOLOL
     Indication: HYPERTENSION
     Dosage: 10 MG, PRN
     Route: 048
     Dates: start: 2013
  2. CLEOCIN T [Concomitant]
     Active Substance: CLINDAMYCIN PHOSPHATE
     Indication: DERMATITIS ACNEIFORM
     Dosage: 1 %, BID
     Route: 061
     Dates: start: 20140527
  3. CYMBALTA [Concomitant]
     Active Substance: DULOXETINE HYDROCHLORIDE
     Indication: DEPRESSION
     Dosage: 60 MG, QD
     Route: 048
     Dates: start: 20140430
  4. GSK1120212 [Suspect]
     Active Substance: TRAMETINIB
     Indication: METASTATIC MALIGNANT MELANOMA
     Dosage: 2 MG, QD
     Route: 048
     Dates: start: 20140512, end: 20140601
  5. SYSTANE (HYPROMELLOSE 2910 (4000 MPA.S)) [Concomitant]
     Active Substance: HYPROMELLOSE 2910 (4000 MPA.S)
     Indication: LACRIMATION INCREASED
     Dosage: 1 WEEK 1 DAY (0.4/0.3 % AS REQUIRED)
     Route: 047
     Dates: start: 20140527, end: 20140603
  6. MEDI4736 [Suspect]
     Active Substance: DURVALUMAB
     Indication: METASTATIC MALIGNANT MELANOMA
     Dosage: 10 MG/KG, Q2W
     Route: 042
     Dates: start: 20140512, end: 20140527
  7. MINOCYCLINE [Concomitant]
     Active Substance: MINOCYCLINE\MINOCYCLINE HYDROCHLORIDE
     Indication: DERMATITIS ACNEIFORM
     Dosage: 100 MG, BID
     Route: 048
     Dates: start: 20140527

REACTIONS (1)
  - Choroidal effusion [Recovered/Resolved]

NARRATIVE: CASE EVENT DATE: 20140603
